FAERS Safety Report 12387509 (Version 1)
Quarter: 2016Q2

REPORT INFORMATION
  Report Type: Spontaneous
  Country: US (occurrence: US)
  Receive Date: 20160520
  Receipt Date: 20160520
  Transmission Date: 20160815
  Serious: Yes (Other)
  Sender: FDA-Public Use
  Company Number: US-MYLANLABS-2016M1020891

PATIENT

DRUGS (2)
  1. LAMOTRIGINE. [Suspect]
     Active Substance: LAMOTRIGINE
     Dosage: 10 TABLETS, ONCE
     Route: 048
     Dates: start: 20160419
  2. APTIOM [Suspect]
     Active Substance: ESLICARBAZEPINE ACETATE
     Dosage: TOOK 29 PILLS (17400 MG), ONCE
     Route: 048

REACTIONS (3)
  - Suicide attempt [Unknown]
  - Sedation [Unknown]
  - Intentional overdose [Unknown]

NARRATIVE: CASE EVENT DATE: 20160419
